FAERS Safety Report 9844963 (Version 1)
Quarter: 2014Q1

REPORT INFORMATION
  Report Type: Spontaneous
  Country: US (occurrence: US)
  Receive Date: 20140127
  Receipt Date: 20140127
  Transmission Date: 20141002
  Serious: Yes (Other)
  Sender: FDA-Public Use
  Company Number: US-MYLANLABS-2014S1000988

PATIENT
  Age: 44 Year
  Sex: Male

DRUGS (17)
  1. BOCEPREVIR [Suspect]
     Indication: HEPATITIS C
     Route: 065
  2. DOXAZOSIN [Interacting]
     Dosage: AT BEDTIME
     Route: 065
  3. TAMSULOSIN [Interacting]
     Dosage: 0.4MG DAILY
     Route: 065
  4. QUETIAPINE [Interacting]
     Indication: AFFECTIVE DISORDER
     Dosage: 1-3 TABLETS OF 100MG EVERY EVENING
     Route: 065
  5. TESTOSTERONE CIPIONATE [Suspect]
     Indication: HYPOGONADISM
     Dosage: ONE EVERY 14 DAYS
     Route: 030
  6. ATRIPLA [Concomitant]
     Dosage: EFAVIRENZ 600MG/EMTRICITABINE 200MG/TENOFOVIR DISOPROXIL FUMARATE 300MG DAILY
     Route: 048
  7. PEGINTERFERON ALFA-2B [Concomitant]
     Indication: HEPATITIS C
     Route: 058
  8. RIBAVIRIN [Concomitant]
     Indication: HEPATITIS C
     Dosage: 400MG EVERY MORNING, 600MG EVERY EVENING
     Route: 065
  9. ONDANSETRON [Concomitant]
     Indication: NAUSEA
     Route: 065
  10. ESOMEPRAZOLE [Concomitant]
     Dosage: 40MG DAILY
     Route: 065
  11. LITHIUM [Concomitant]
     Dosage: AT BEDTIME
     Route: 065
  12. LOSARTAN [Concomitant]
     Dosage: 50MG DAILY
     Route: 065
  13. NAPROXEN [Concomitant]
     Indication: PAIN
     Dosage: AS NEEDED
  14. OXYCODONE/APAP                     /01601701/ [Concomitant]
     Indication: PAIN
     Dosage: 5-325MG EVERY 6H AS NEEDED
     Route: 065
  15. LOPERAMIDE [Concomitant]
     Indication: DIARRHOEA
     Dosage: 2MG AS NEEDED
     Route: 065
  16. CODEINE W/GLYCERYL GUICULATE [Concomitant]
     Indication: COUGH
     Dosage: 15MG/5-10ML 4X DAILY AS NEEDED
     Route: 065
  17. CYCLOBENZAPRINE [Concomitant]
     Indication: MUSCLE SPASMS
     Route: 065

REACTIONS (4)
  - Drug interaction [Recovering/Resolving]
  - Priapism [Recovering/Resolving]
  - Nausea [Unknown]
  - Vomiting [Unknown]
